FAERS Safety Report 19232680 (Version 1)
Quarter: 2021Q2

REPORT INFORMATION
  Report Type: Spontaneous
  Country: DE (occurrence: DE)
  Receive Date: 20210507
  Receipt Date: 20210507
  Transmission Date: 20210717
  Serious: Yes (Hospitalization)
  Sender: FDA-Public Use
  Company Number: DE-JNJFOC-20210459842

PATIENT
  Sex: Male

DRUGS (3)
  1. XEPLION [Suspect]
     Active Substance: PALIPERIDONE PALMITATE
     Indication: SCHIZOPHRENIA
     Route: 030
  2. XEPLION [Suspect]
     Active Substance: PALIPERIDONE PALMITATE
  3. XEPLION [Suspect]
     Active Substance: PALIPERIDONE PALMITATE

REACTIONS (6)
  - Abnormal behaviour [Not Recovered/Not Resolved]
  - Visual impairment [Not Recovered/Not Resolved]
  - Muscle disorder [Not Recovered/Not Resolved]
  - Depression [Unknown]
  - Fear [Unknown]
  - Hospitalisation [Unknown]
